FAERS Safety Report 6965224-8 (Version None)
Quarter: 2010Q3

REPORT INFORMATION
  Report Type: 
  Country: None (occurrence: None)
  Receive Date: 20100903
  Receipt Date: 20100823
  Transmission Date: 20110219
  Serious: Yes (Hospitalization, Other)
  Sender: FDA-Public Use
  Company Number: PHHY2010DE02256

PATIENT
  Age: 72 Year
  Sex: Female

DRUGS (2)
  1. FEMARA [Suspect]
     Indication: BREAST CANCER
     Dosage: 2.5 MG, QD
     Route: 048
     Dates: start: 20071201
  2. NOVOTHYRAL [Concomitant]
     Indication: HYPOTHYROIDISM
     Route: 048

REACTIONS (6)
  - FEELING OF BODY TEMPERATURE CHANGE [None]
  - INCONTINENCE [None]
  - OSTEOPOROSIS [None]
  - PARAESTHESIA [None]
  - SPINAL CORD HERNIATION [None]
  - SPINAL CORD OPERATION [None]
